FAERS Safety Report 9363398 (Version 2)
Quarter: 2013Q4

REPORT INFORMATION
  Report Type: Spontaneous
  Country: US (occurrence: US)
  Receive Date: 20130624
  Receipt Date: 20131101
  Transmission Date: 20140711
  Serious: Yes (Hospitalization, Other)
  Sender: FDA-Public Use
  Company Number: US-BAYER-2013-074663

PATIENT
  Age: 39 Year
  Sex: Female
  Weight: 54.42 kg

DRUGS (1)
  1. MIRENA [Suspect]
     Indication: CONTRACEPTION
     Dosage: 20 MCG/24HR, CONT
     Route: 015
     Dates: start: 20060609, end: 20110728

REACTIONS (15)
  - Uterine perforation [None]
  - Bladder perforation [None]
  - Genital haemorrhage [None]
  - Injury [None]
  - Pain [None]
  - Uterine leiomyoma [None]
  - Device difficult to use [None]
  - Emotional distress [None]
  - Device misuse [None]
  - Internal injury [None]
  - Depression [None]
  - Anxiety [None]
  - Depressed mood [None]
  - Fear [None]
  - Medical device discomfort [None]
